FAERS Safety Report 18657878 (Version 5)
Quarter: 2022Q3

REPORT INFORMATION
  Report Type: Report from Study
  Country: US (occurrence: US)
  Receive Date: 20201224
  Receipt Date: 20220929
  Transmission Date: 20221027
  Serious: Yes (Other)
  Sender: FDA-Public Use
  Company Number: US-HORIZON-2020HZN02659

PATIENT

DRUGS (6)
  1. TEPEZZA [Suspect]
     Active Substance: TEPROTUMUMAB-TRBW
     Indication: Endocrine ophthalmopathy
     Dosage: FIRST INFUSION (EVERY 3 WEEKS)
     Route: 042
     Dates: start: 20201217
  2. TEPEZZA [Suspect]
     Active Substance: TEPROTUMUMAB-TRBW
     Dosage: UNK
     Route: 042
     Dates: start: 202012
  3. TEPEZZA [Suspect]
     Active Substance: TEPROTUMUMAB-TRBW
     Dosage: UNK
     Route: 042
     Dates: start: 202101
  4. TEPEZZA [Suspect]
     Active Substance: TEPROTUMUMAB-TRBW
     Dosage: (INFUSION 7 OF UNKNOWN COURSE)
     Route: 042
     Dates: start: 20220831
  5. TEPEZZA [Suspect]
     Active Substance: TEPROTUMUMAB-TRBW
     Dosage: (INFUSION 8 OF UNKNOWN COURSE)
     Route: 042
     Dates: start: 20220921
  6. ESTROGENS [Concomitant]
     Active Substance: ESTROGENS
     Indication: Product used for unknown indication

REACTIONS (14)
  - Type 1 diabetes mellitus [Unknown]
  - Deafness [Recovering/Resolving]
  - Nail ridging [Unknown]
  - Orgasm abnormal [Unknown]
  - Eustachian tube obstruction [Not Recovered/Not Resolved]
  - Onychoclasis [Recovering/Resolving]
  - Weight decreased [Recovering/Resolving]
  - Nail discolouration [Unknown]
  - Muscle spasms [Not Recovered/Not Resolved]
  - Alopecia [Not Recovered/Not Resolved]
  - Cellulitis [Recovering/Resolving]
  - Nail infection [Recovering/Resolving]
  - Product availability issue [Unknown]
  - Vision blurred [Unknown]

NARRATIVE: CASE EVENT DATE: 20201220
